FAERS Safety Report 23003190 (Version 2)
Quarter: 2024Q2

REPORT INFORMATION
  Report Type: Spontaneous
  Country: US (occurrence: US)
  Receive Date: 20230928
  Receipt Date: 20240403
  Transmission Date: 20240716
  Serious: Yes (Other)
  Sender: FDA-Public Use
  Company Number: US-OPELLA-2023OHG008627

PATIENT
  Age: 64 Year
  Sex: Male

DRUGS (5)
  1. GOLD BOND MEDICATED ORIGINAL STRENGTH BODY [Suspect]
     Active Substance: MENTHOL
     Indication: Product used for unknown indication
  2. FISH OIL [Concomitant]
     Active Substance: FISH OIL
     Indication: Product used for unknown indication
     Dosage: ORAL CAPSULE CONVENTIONAL 1000MG, 1 TWO TIMES A DAY
     Route: 048
  3. VITAMIN D [Concomitant]
     Active Substance: VITAMIN D NOS
     Indication: Product used for unknown indication
     Dosage: VITAMIN D ORAL CAPSULE CONVENTIONAL 1000 UNIT, 1 THREE TIMES A DAY,
     Route: 048
  4. VITAMINS [Concomitant]
     Active Substance: VITAMINS
     Indication: Product used for unknown indication
     Dosage: MULTIVITAMINS ORAL TABLET, 1 EVERY DAY,
     Route: 048
  5. VITAMIN C [Concomitant]
     Active Substance: ASCORBIC ACID
     Indication: Product used for unknown indication
     Dosage: VITAMIN C ORAL TABLET 500 MG, 1 TWO TIMES A DAY
     Route: 048

REACTIONS (1)
  - Sarcomatoid mesothelioma [Unknown]
